FAERS Safety Report 10163506 (Version 2)
Quarter: 2014Q2

REPORT INFORMATION
  Report Type: Spontaneous
  Country: JP (occurrence: JP)
  Receive Date: 20140509
  Receipt Date: 20140509
  Transmission Date: 20141212
  Serious: Yes (Hospitalization)
  Sender: FDA-Public Use
  Company Number: JP-ELI_LILLY_AND_COMPANY-JP201404002205

PATIENT
  Age: 75 Year
  Sex: Female

DRUGS (4)
  1. FORTEO [Suspect]
     Indication: PRODUCT USED FOR UNKNOWN INDICATION
     Dosage: 20 UG, QD
     Route: 058
  2. ALOGLIPTIN BENZOATE [Concomitant]
     Dosage: UNK
     Route: 048
  3. URSO                               /00465701/ [Concomitant]
     Dosage: UNK
     Route: 048
  4. TAKEPRON [Concomitant]
     Dosage: UNK
     Route: 048

REACTIONS (3)
  - Disseminated intravascular coagulation [Recovered/Resolved]
  - Urinary retention [Recovered/Resolved]
  - Sepsis [Recovered/Resolved]
